FAERS Safety Report 9824441 (Version 2)
Quarter: 2014Q1

REPORT INFORMATION
  Report Type: Spontaneous
  Country: US (occurrence: US)
  Receive Date: 20140116
  Receipt Date: 20140116
  Transmission Date: 20141002
  Serious: No
  Sender: FDA-Public Use
  Company Number: US-GILEAD-2011-0039648

PATIENT
  Age: 76 Year
  Sex: Female
  Weight: 84.82 kg

DRUGS (14)
  1. LETAIRIS [Suspect]
     Indication: PULMONARY HYPERTENSION
     Route: 048
     Dates: start: 20101028
  2. REVATIO [Concomitant]
  3. ATENOLOL [Concomitant]
  4. LISINOPRIL [Concomitant]
  5. FUROSEMIDE [Concomitant]
  6. SPIRONOLACTONE [Concomitant]
  7. WARFARIN [Concomitant]
  8. OXYGEN [Concomitant]
  9. SPIRIVA [Concomitant]
  10. IPRATROPIUM BROMIDE/SALBUTAMOL SULFATE [Concomitant]
  11. PEPCID [Concomitant]
  12. MYCOLOG CREAM [Concomitant]
  13. ALLOPURINOL [Concomitant]
  14. K-DUR [Concomitant]

REACTIONS (1)
  - Pruritus [Not Recovered/Not Resolved]
